FAERS Safety Report 18096141 (Version 1)
Quarter: 2020Q3

REPORT INFORMATION
  Report Type: Spontaneous
  Country: NL (occurrence: NL)
  Receive Date: 20200731
  Receipt Date: 20200731
  Transmission Date: 20201103
  Serious: Yes (Hospitalization, Other)
  Sender: FDA-Public Use
  Company Number: NL-AUROBINDO-AUR-APL-2020-037050

PATIENT
  Age: 73 Year
  Sex: Female
  Weight: 65 kg

DRUGS (5)
  1. CARBOPLATIN CONCENTRATE FOR SOLUTION FOR INFUSION [Suspect]
     Active Substance: CARBOPLATIN
     Indication: LUNG NEOPLASM MALIGNANT
     Dosage: 509 MILLIGRAM
     Route: 065
     Dates: start: 20200709, end: 20200709
  2. IPRATROPIUM [Concomitant]
     Active Substance: IPRATROPIUM
     Indication: PRODUCT USED FOR UNKNOWN INDICATION
     Dosage: AEROSOL,20 MICROGRAM/DOSIS
     Route: 065
  3. PEMETREXED. [Suspect]
     Active Substance: PEMETREXED
     Indication: LUNG NEOPLASM MALIGNANT
     Dosage: 850 MILLIGRAM
     Route: 065
     Dates: start: 20200709, end: 20200709
  4. HYDROXOCOBALAMINE [Concomitant]
     Active Substance: HYDROXOCOBALAMIN
     Indication: PRODUCT USED FOR UNKNOWN INDICATION
     Dosage: 500 MICROGRAM/MILLILITER
     Route: 065
  5. FOLIC ACID. [Concomitant]
     Active Substance: FOLIC ACID
     Indication: PRODUCT USED FOR UNKNOWN INDICATION
     Dosage: 0.5 MILLIGRAM
     Route: 065

REACTIONS (1)
  - Acute myocardial infarction [Recovering/Resolving]

NARRATIVE: CASE EVENT DATE: 20200711
